FAERS Safety Report 22055341 (Version 1)
Quarter: 2023Q1

REPORT INFORMATION
  Report Type: Spontaneous
  Country: JP (occurrence: JP)
  Receive Date: 20230302
  Receipt Date: 20230302
  Transmission Date: 20230417
  Serious: Yes (Death)
  Sender: FDA-Public Use
  Company Number: A202300141-001

PATIENT
  Age: 72 Year
  Sex: Female

DRUGS (16)
  1. BENDAMUSTINE HYDROCHLORIDE [Suspect]
     Active Substance: BENDAMUSTINE HYDROCHLORIDE
     Indication: Follicular lymphoma
     Dosage: UNK, CYCLE 1 GB THERAPY
     Route: 042
  2. BENDAMUSTINE HYDROCHLORIDE [Suspect]
     Active Substance: BENDAMUSTINE HYDROCHLORIDE
     Dosage: UNK, CYCLE 2 GB THERAPY
     Route: 042
  3. BENDAMUSTINE HYDROCHLORIDE [Suspect]
     Active Substance: BENDAMUSTINE HYDROCHLORIDE
     Dosage: UNK, CYCLE 3 GB THERAPY
     Route: 042
  4. BENDAMUSTINE HYDROCHLORIDE [Suspect]
     Active Substance: BENDAMUSTINE HYDROCHLORIDE
     Dosage: UNK, CYCLE 4 GB THERAPY
     Route: 042
  5. BENDAMUSTINE HYDROCHLORIDE [Suspect]
     Active Substance: BENDAMUSTINE HYDROCHLORIDE
     Dosage: UNK, CYCLE 5 GB THERAPY
     Route: 042
  6. BENDAMUSTINE HYDROCHLORIDE [Suspect]
     Active Substance: BENDAMUSTINE HYDROCHLORIDE
     Dosage: UNK, CYCLE 6 GB THERAPY
     Route: 042
  7. GAZYVA [Suspect]
     Active Substance: OBINUTUZUMAB
     Indication: Follicular lymphoma
     Dosage: UNK, CYCLE 1 GB THERAPY
     Route: 042
  8. GAZYVA [Suspect]
     Active Substance: OBINUTUZUMAB
     Dosage: UNK, CYCLE 2 GB THERAPY
     Route: 042
  9. GAZYVA [Suspect]
     Active Substance: OBINUTUZUMAB
     Dosage: UNK, CYCLE 3 GB THERAPY
     Route: 042
  10. GAZYVA [Suspect]
     Active Substance: OBINUTUZUMAB
     Dosage: UNK, CYCLE 4 GB THERAPY
     Route: 042
  11. GAZYVA [Suspect]
     Active Substance: OBINUTUZUMAB
     Dosage: UNK, CYCLE 5 GB THERAPY
     Route: 042
  12. GAZYVA [Suspect]
     Active Substance: OBINUTUZUMAB
     Dosage: UNK, CYCLE 6 GB THERAPY
     Route: 042
  13. GAZYVA [Suspect]
     Active Substance: OBINUTUZUMAB
     Dosage: UNK, CYCLE 1 MAINTENANCE THERAPY
     Route: 042
  14. GAZYVA [Suspect]
     Active Substance: OBINUTUZUMAB
     Dosage: UNK, CYCLE 2 MAINTENANCE THERAPY
     Route: 042
  15. GAZYVA [Suspect]
     Active Substance: OBINUTUZUMAB
     Dosage: UNK, CYCLE 3 MAINTENANCE THERAPY
     Route: 042
  16. GAZYVA [Suspect]
     Active Substance: OBINUTUZUMAB
     Dosage: UNK, CYCLE 4 MAINTENANCE THERAPY
     Route: 042

REACTIONS (2)
  - Coronavirus infection [Fatal]
  - Coronavirus pneumonia [Fatal]

NARRATIVE: CASE EVENT DATE: 20221110
